FAERS Safety Report 6800813-2 (Version None)
Quarter: 2010Q2

REPORT INFORMATION
  Report Type: 
  Country: None (occurrence: None)
  Receive Date: 20100629
  Receipt Date: 20100618
  Transmission Date: 20101027
  Serious: Yes (Hospitalization)
  Sender: FDA-Public Use
  Company Number: US-BAYER-201024302NA

PATIENT
  Age: 74 Year
  Sex: Female

DRUGS (6)
  1. SORAFENIB [Suspect]
     Indication: GALLBLADDER CANCER METASTATIC
     Dosage: TOTAL DAILY DOSE: 200 MG  UNIT DOSE: 200 MG
     Route: 048
     Dates: start: 20100608
  2. SORAFENIB [Suspect]
     Dates: start: 20100507
  3. CISPLATIN [Suspect]
     Indication: GALLBLADDER CANCER METASTATIC
     Dosage: AS USED: 20 MG/M2
     Dates: start: 20100608
  4. CISPLATIN [Suspect]
     Dates: start: 20100507
  5. GEMCITABINE HCL [Suspect]
     Indication: GALLBLADDER CANCER METASTATIC
     Dosage: AS USED: 800 MG/M2
     Dates: start: 20100608
  6. GEMCITABINE HCL [Suspect]
     Dates: start: 20100507

REACTIONS (4)
  - ABDOMINAL PAIN [None]
  - CHILLS [None]
  - FATIGUE [None]
  - NEUTROPENIA [None]
